FAERS Safety Report 15200796 (Version 2)
Quarter: 2018Q3

REPORT INFORMATION
  Report Type: Report from Study
  Country: US (occurrence: US)
  Receive Date: 20180726
  Receipt Date: 20180815
  Transmission Date: 20181010
  Serious: Yes (Other)
  Sender: FDA-Public Use
  Company Number: US-GILEAD-2018-0351277

PATIENT
  Age: 85 Year
  Sex: Male

DRUGS (2)
  1. RANOLAZINE. [Suspect]
     Active Substance: RANOLAZINE
     Indication: ANGINA PECTORIS
     Dosage: 1000 MG, BID
     Route: 048
     Dates: start: 2017
  2. RANOLAZINE. [Suspect]
     Active Substance: RANOLAZINE
     Dosage: UNK
     Route: 048

REACTIONS (5)
  - Catheterisation cardiac [Unknown]
  - Cerebrovascular accident [Unknown]
  - Hypoacusis [Not Recovered/Not Resolved]
  - Intentional product use issue [Unknown]
  - Vascular graft [Unknown]

NARRATIVE: CASE EVENT DATE: 201706
